FAERS Safety Report 17483066 (Version 1)
Quarter: 2020Q1

REPORT INFORMATION
  Report Type: Spontaneous
  Country: US (occurrence: US)
  Receive Date: 20200218
  Receipt Date: 20200218
  Transmission Date: 20200409
  Serious: Yes (Other)
  Sender: FDA-Public Use
  Company Number: None

PATIENT

DRUGS (1)
  1. QUEEN B-VAGINAL SUPPORITES (GREEN + BLACK BOX) [Suspect]
     Active Substance: HOMEOPATHICS
     Indication: RETINOPATHY
     Dosage: ?          QUANTITY:1 DF DOSAGE FORM;?

REACTIONS (2)
  - Product contamination microbial [None]
  - Product quality issue [None]

NARRATIVE: CASE EVENT DATE: 20200123
